FAERS Safety Report 18174667 (Version 2)
Quarter: 2020Q3

REPORT INFORMATION
  Report Type: Spontaneous
  Country: US (occurrence: US)
  Receive Date: 20200820
  Receipt Date: 20200925
  Transmission Date: 20201103
  Serious: Yes (Other)
  Sender: FDA-Public Use
  Company Number: US-PFIZER INC-2020320382

PATIENT
  Age: 68 Year
  Sex: Female
  Weight: 82.1 kg

DRUGS (1)
  1. CELEBREX [Suspect]
     Active Substance: CELECOXIB
     Indication: OSTEOARTHRITIS
     Dosage: 200 MG, 2X/DAY
     Route: 048

REACTIONS (5)
  - Osteoarthritis [Unknown]
  - Body height decreased [Unknown]
  - Product use issue [Unknown]
  - Sensitivity to weather change [Unknown]
  - Off label use [Unknown]
